FAERS Safety Report 14479485 (Version 1)
Quarter: 2018Q1

REPORT INFORMATION
  Report Type: Spontaneous
  Country: US (occurrence: US)
  Receive Date: 20180201
  Receipt Date: 20180201
  Transmission Date: 20180509
  Serious: No
  Sender: FDA-Public Use
  Company Number: None

PATIENT
  Age: 48 Year
  Sex: Male

DRUGS (1)
  1. CAPECITABINE. [Suspect]
     Active Substance: CAPECITABINE
     Indication: COLON CANCER
     Route: 048
     Dates: start: 20180112, end: 20180117

REACTIONS (14)
  - Hypoaesthesia [None]
  - Swelling [None]
  - Pain [None]
  - Weight decreased [None]
  - Skin exfoliation [None]
  - Skin discolouration [None]
  - Skin fissures [None]
  - Stomatitis [None]
  - Penile pain [None]
  - Swollen tongue [None]
  - Palmar-plantar erythrodysaesthesia syndrome [None]
  - Lacrimation increased [None]
  - Blister [None]
  - Dysuria [None]

NARRATIVE: CASE EVENT DATE: 20180112
